FAERS Safety Report 4684609-6 (Version None)
Quarter: 2005Q2

REPORT INFORMATION
  Report Type: 
  Country: None (occurrence: None)
  Receive Date: 20050531
  Receipt Date: 20050323
  Transmission Date: 20051028
  Serious: Yes (Hospitalization)
  Sender: FDA-Public Use
  Company Number: USA050290739

PATIENT
  Age: 79 Year
  Sex: Female

DRUGS (4)
  1. ZYPREXA [Suspect]
     Indication: BIPOLAR I DISORDER
     Dosage: 5 MG/1 DAY
  2. ATIVAN [Concomitant]
  3. PROZAC [Concomitant]
  4. CYMBALTA (ARICLAIM) [Concomitant]

REACTIONS (1)
  - BLOOD GLUCOSE INCREASED [None]
